FAERS Safety Report 16953751 (Version 3)
Quarter: 2023Q1

REPORT INFORMATION
  Report Type: Other
  Country: NL (occurrence: NL)
  Receive Date: 20191023
  Receipt Date: 20230116
  Transmission Date: 20230418
  Serious: Yes (Life-Threatening, Other)
  Sender: FDA-Public Use
  Company Number: NL-TOLMAR, INC.-19NL000476

PATIENT
  Age: 68 Year
  Sex: Male
  Weight: 88 kg

DRUGS (9)
  1. ELIGARD [Suspect]
     Active Substance: LEUPROLIDE ACETATE
     Indication: Prostate cancer
     Dosage: 22.5 MILLIGRAM, Q 3 MONTH
     Dates: start: 20160818
  2. ELIGARD [Suspect]
     Active Substance: LEUPROLIDE ACETATE
     Dosage: 22.5 MILLIGRAM, Q 3 MONTH
     Dates: start: 20160301, end: 20170609
  3. ENZALUTAMIDE [Suspect]
     Active Substance: ENZALUTAMIDE
     Indication: Prostate cancer
     Dosage: UNK, QD
     Route: 048
     Dates: start: 20160301, end: 20170609
  4. ENZALUTAMIDE [Suspect]
     Active Substance: ENZALUTAMIDE
     Dosage: UNK, QD
     Dates: start: 20161109
  5. ACENOCOUMAROL [Concomitant]
     Active Substance: ACENOCOUMAROL
     Indication: Atrial fibrillation
     Dosage: 3 MG, PRN
     Route: 048
     Dates: start: 2006
  6. METOPROLOLSUCCINAAT/HYDROCHLOORTHIAZIDE SANDO [Concomitant]
     Indication: Hypertension
     Dosage: 95/12.5 MG, QD
     Route: 048
     Dates: start: 2011
  7. ENALAPRIL MALEATE [Concomitant]
     Active Substance: ENALAPRIL MALEATE
     Indication: Hypertension
     Dosage: 10 MG, QD
     Route: 048
     Dates: start: 2011
  8. SIMVASTATIN [Concomitant]
     Active Substance: SIMVASTATIN
     Indication: Blood cholesterol increased
     Dosage: 40 MG, QD
     Route: 048
     Dates: start: 2011
  9. ALENDRONIC ACID [Concomitant]
     Active Substance: ALENDRONIC ACID
     Indication: Osteoporosis
     Dosage: 70 MG, 1/WEEK
     Route: 048
     Dates: start: 20170413

REACTIONS (2)
  - Plasma cell myeloma [Not Recovered/Not Resolved]
  - Second primary malignancy [Not Recovered/Not Resolved]

NARRATIVE: CASE EVENT DATE: 20170601
